FAERS Safety Report 8558070-5 (Version None)
Quarter: 2012Q3

REPORT INFORMATION
  Report Type: 
  Country: None (occurrence: None)
  Receive Date: 20120801
  Receipt Date: 20120724
  Transmission Date: 20120928
  Serious: Yes (Other)
  Sender: FDA-Public Use
  Company Number: CA-ELI_LILLY_AND_COMPANY-CA201205007696

PATIENT
  Age: 77 Year
  Sex: Female

DRUGS (7)
  1. CETIRIZINE HCL [Concomitant]
  2. AMLODIPINE [Concomitant]
  3. FORTEO [Suspect]
     Indication: OSTEOPOROSIS
     Dosage: 20 UG, QD
     Route: 058
     Dates: start: 20110414, end: 20120419
  4. CALCIUM CARBONATE [Concomitant]
  5. FOSINOPRIL SODIUM [Concomitant]
  6. CITALOPRAM HYDROBROMIDE [Concomitant]
  7. ASPIRIN [Concomitant]
     Dosage: 81 MG, UNK

REACTIONS (8)
  - INTENTIONAL DRUG MISUSE [None]
  - DIARRHOEA [None]
  - CONSTIPATION [None]
  - FREQUENT BOWEL MOVEMENTS [None]
  - GASTROINTESTINAL DISORDER [None]
  - NAUSEA [None]
  - RECTAL HAEMORRHAGE [None]
  - ABDOMINAL DISTENSION [None]
